FAERS Safety Report 7898972-6 (Version None)
Quarter: 2011Q4

REPORT INFORMATION
  Report Type: 
  Country: None (occurrence: None)
  Receive Date: 20111107
  Receipt Date: 20111104
  Transmission Date: 20120403
  Serious: Yes (Other)
  Sender: FDA-Public Use
  Company Number: GB-ABBOTT-11P-167-0871584-00

PATIENT
  Sex: Male

DRUGS (1)
  1. VALPROIC ACID [Suspect]
     Indication: SLEEP DISORDER THERAPY
     Route: 065

REACTIONS (3)
  - FALL [None]
  - MEMORY IMPAIRMENT [None]
  - RIB FRACTURE [None]
